FAERS Safety Report 9227028 (Version 1)
Quarter: 2013Q2

REPORT INFORMATION
  Report Type: Spontaneous
  Country: US (occurrence: US)
  Receive Date: 20130412
  Receipt Date: 20130412
  Transmission Date: 20140414
  Serious: No
  Sender: FDA-Public Use
  Company Number: US-TEVA-397162USA

PATIENT
  Sex: Female

DRUGS (4)
  1. PROAIR HFA [Suspect]
  2. ALBUTEROL [Suspect]
  3. SYMBICORT [Suspect]
     Indication: ASTHMA
  4. SYMBICORT [Suspect]
     Indication: CHRONIC OBSTRUCTIVE PULMONARY DISEASE

REACTIONS (1)
  - Alopecia [Unknown]
